FAERS Safety Report 18211745 (Version 1)
Quarter: 2020Q3

REPORT INFORMATION
  Report Type: Other
  Country: CA (occurrence: CA)
  Receive Date: 20200831
  Receipt Date: 20200831
  Transmission Date: 20201103
  Serious: Yes (Hospitalization, Other)
  Sender: FDA-Public Use
  Company Number: CA-INVENTIA-000037

PATIENT
  Age: 22 Year
  Sex: Male
  Weight: 28.5 kg

DRUGS (1)
  1. PALIPERIDONE. [Suspect]
     Active Substance: PALIPERIDONE
     Indication: SCHIZOPHRENIA
     Dosage: EVERY 4 WEEKS FOR THE PAST 6 MONTHS

REACTIONS (2)
  - Pulmonary embolism [Recovered/Resolved]
  - Hyperprolactinaemia [Recovered/Resolved]
